FAERS Safety Report 9640989 (Version 1)
Quarter: 2013Q4

REPORT INFORMATION
  Report Type: Spontaneous
  Country: US (occurrence: US)
  Receive Date: 20131023
  Receipt Date: 20131023
  Transmission Date: 20140711
  Serious: No
  Sender: FDA-Public Use
  Company Number: US-ABBVIE-13P-163-1113879-00

PATIENT
  Sex: Female
  Weight: 61.74 kg

DRUGS (4)
  1. LUPRON DEPOT [Suspect]
     Indication: AUTOIMMUNE PROGESTERONE DERMATITIS
     Dates: start: 2005
  2. EVISTA [Concomitant]
     Indication: BONE LOSS
  3. EVISTA [Concomitant]
     Indication: PROPHYLAXIS
  4. STRATTERA [Concomitant]
     Indication: ATTENTION DEFICIT/HYPERACTIVITY DISORDER

REACTIONS (1)
  - Off label use [Unknown]
